FAERS Safety Report 16807622 (Version 1)
Quarter: 2019Q3

REPORT INFORMATION
  Report Type: Spontaneous
  Country: US (occurrence: US)
  Receive Date: 20190914
  Receipt Date: 20190914
  Transmission Date: 20191005
  Serious: No
  Sender: FDA-Public Use
  Company Number: US-009507513-1909USA000670

PATIENT
  Sex: Female

DRUGS (2)
  1. IBRANCE [Suspect]
     Active Substance: PALBOCICLIB
     Indication: INFLAMMATORY CARCINOMA OF THE BREAST
     Dosage: UNK
     Dates: start: 2017
  2. PRINIVIL [Suspect]
     Active Substance: LISINOPRIL

REACTIONS (2)
  - Drug hypersensitivity [Unknown]
  - Rash [Unknown]
